FAERS Safety Report 5205909-7 (Version None)
Quarter: 2007Q1

REPORT INFORMATION
  Report Type: 
  Country: None (occurrence: None)
  Receive Date: 20070111
  Receipt Date: 20070104
  Transmission Date: 20070707
  Serious: Yes (Other)
  Sender: FDA-Public Use
  Company Number: US-AVENTIS-200710049US

PATIENT
  Sex: Female
  Weight: 62.73 kg

DRUGS (4)
  1. LOVENOX [Suspect]
     Indication: PROPHYLAXIS OF ABORTION
     Dates: start: 20060501
  2. LOVENOX [Suspect]
  3. LOVENOX [Suspect]
  4. ASPIRIN [Concomitant]

REACTIONS (7)
  - ABORTION SPONTANEOUS [None]
  - ACCIDENT [None]
  - COAGULATION TEST ABNORMAL [None]
  - DRUG EXPOSURE DURING PREGNANCY [None]
  - DRUG INEFFECTIVE [None]
  - PREGNANCY [None]
  - WOUND [None]
